FAERS Safety Report 4891302-3 (Version None)
Quarter: 2006Q1

REPORT INFORMATION
  Report Type: 
  Country: None (occurrence: None)
  Receive Date: 20060123
  Receipt Date: 20060112
  Transmission Date: 20060701
  Serious: Yes (Disabling)
  Sender: FDA-Public Use
  Company Number: 2006-137377-NL

PATIENT
  Age: 71 Year
  Sex: Male

DRUGS (3)
  1. DANAPAROID SODIUM [Suspect]
     Dosage: ANTI_XA
     Dates: start: 20051209, end: 20051212
  2. HEPARIN SODIUM [Suspect]
     Dosage: DF
     Dates: start: 20051201, end: 20051204
  3. HEPARIN CALCIUM [Suspect]
     Dosage: DF
     Dates: start: 20051204, end: 20051209

REACTIONS (4)
  - ARTERIAL THROMBOSIS [None]
  - HEPARIN-INDUCED THROMBOCYTOPENIA [None]
  - LEG AMPUTATION [None]
  - PERIPHERAL ISCHAEMIA [None]
